FAERS Safety Report 9457720 (Version 1)
Quarter: 2013Q3

REPORT INFORMATION
  Report Type: Spontaneous
  Country: US (occurrence: None)
  Receive Date: 20130812
  Receipt Date: 20130812
  Transmission Date: 20140515
  Serious: Yes (Disabling)
  Sender: FDA-Public Use
  Company Number: None

PATIENT
  Age: 54 Year
  Sex: Female
  Weight: 55.79 kg

DRUGS (3)
  1. ABILIFY [Suspect]
     Indication: HALLUCINATION, AUDITORY
     Dates: start: 20081101, end: 20130413
  2. ABILIFY [Suspect]
     Indication: DELUSION
     Dates: start: 20081101, end: 20130413
  3. ABILIFY [Suspect]
     Indication: HALLUCINATION
     Dates: start: 20081101, end: 20130413

REACTIONS (3)
  - Convulsion [None]
  - Cardiac arrest [None]
  - Blood glucose fluctuation [None]
